FAERS Safety Report 8532251-9 (Version None)
Quarter: 2012Q3

REPORT INFORMATION
  Report Type: 
  Country: None (occurrence: None)
  Receive Date: 20120724
  Receipt Date: 20120712
  Transmission Date: 20120928
  Serious: Yes (Hospitalization)
  Sender: FDA-Public Use
  Company Number: FR-BRISTOL-MYERS SQUIBB COMPANY-16470148

PATIENT
  Age: 46 Year
  Sex: Female
  Weight: 52 kg

DRUGS (2)
  1. CETUXIMAB [Suspect]
     Indication: BREAST CANCER
     Dosage: PREVIOUSLY 656 MG
     Route: 042
     Dates: start: 20120314
  2. DOCETAXEL [Suspect]
     Indication: BREAST CANCER
     Dosage: RECENT INF:14MAR12. DOCETAXEL IV INF
     Route: 042
     Dates: start: 20120314

REACTIONS (1)
  - RASH [None]
